FAERS Safety Report 24343373 (Version 1)
Quarter: 2024Q3

REPORT INFORMATION
  Report Type: Spontaneous
  Country: US (occurrence: US)
  Receive Date: 20240920
  Receipt Date: 20240920
  Transmission Date: 20241016
  Serious: Yes (Other)
  Sender: JIANGSU HENGRUI MEDICINE
  Company Number: US-Jiangsu Hengrui Medicine Co., Ltd.-2161860

PATIENT
  Age: 15 Year
  Sex: Male
  Weight: 46.4 kg

DRUGS (7)
  1. CYCLOPHOSPHAMIDE [Suspect]
     Active Substance: CYCLOPHOSPHAMIDE
     Indication: Neuroblastoma
     Dates: start: 20221031
  2. IRINOTECAN HYDROCHLORIDE [Suspect]
     Active Substance: IRINOTECAN HYDROCHLORIDE
     Dates: end: 20230802
  3. NAXITAMAB [Suspect]
     Active Substance: NAXITAMAB
     Dates: end: 20230802
  4. TOPOTECAN [Suspect]
     Active Substance: TOPOTECAN HYDROCHLORIDE
     Dates: start: 20221031
  5. GRANULOCYTE-MACROPHAGE COLONY-STIMULATING FACTOR [Suspect]
     Active Substance: GRANULOCYTE-MACROPHAGE COLONY-STIMULATING FACTOR
  6. DINUTUXIMAB [Suspect]
     Active Substance: DINUTUXIMAB
  7. TEMOZOLOMIDE [Suspect]
     Active Substance: TEMOZOLOMIDE
     Dates: end: 20230802

REACTIONS (4)
  - Myelodysplastic syndrome [Unknown]
  - Product use in unapproved indication [Unknown]
  - Ureteric stenosis [Recovered/Resolved]
  - Hydronephrosis [Recovered/Resolved]
